FAERS Safety Report 7246289-5 (Version None)
Quarter: 2011Q1

REPORT INFORMATION
  Report Type: 
  Country: None (occurrence: None)
  Receive Date: 20110126
  Receipt Date: 20110114
  Transmission Date: 20110831
  Serious: Yes (Death)
  Sender: FDA-Public Use
  Company Number: CA-CELGENEUS-028-21880-11011476

PATIENT
  Sex: Male

DRUGS (15)
  1. AVODART [Concomitant]
     Route: 065
  2. TRAZODONE [Concomitant]
     Route: 065
  3. NEXIUM [Concomitant]
     Route: 065
  4. CITALOPRAM [Concomitant]
     Route: 065
  5. ASA [Concomitant]
     Route: 048
  6. SYNTHROID [Concomitant]
     Route: 065
  7. CALCITED [Concomitant]
     Route: 065
  8. METOCLOPRAMIDE [Concomitant]
     Route: 065
  9. REVLIMID [Suspect]
     Indication: MULTIPLE MYELOMA
     Route: 048
     Dates: start: 20101124
  10. CRESTOR [Concomitant]
     Route: 065
  11. TYLENOL-500 [Concomitant]
     Route: 065
  12. METFORMIN [Concomitant]
     Route: 065
  13. SPIRIVA [Concomitant]
     Route: 065
  14. K-DUR [Concomitant]
     Route: 065
  15. DECADRON [Concomitant]
     Route: 048

REACTIONS (1)
  - DEATH [None]
